FAERS Safety Report 4976957-7 (Version None)
Quarter: 2006Q2

REPORT INFORMATION
  Report Type: 
  Country: None (occurrence: None)
  Receive Date: 20060413
  Receipt Date: 20060407
  Transmission Date: 20061013
  Serious: Yes (Hospitalization)
  Sender: FDA-Public Use
  Company Number: 2006AP000258

PATIENT
  Age: 47 Year
  Sex: Male

DRUGS (11)
  1. LITHIUM CARBONATE CAP [Suspect]
     Dosage: 450 MG; BID; PO
     Route: 048
  2. ZIPRASIDONE HCL [Suspect]
     Indication: AGITATION
     Dosage: 20 MG; PRN; IM; SEE IMAGE; 5 TOTAL
     Route: 030
  3. DIVALPROEX SODIUM [Concomitant]
  4. LOSARTAN POTASSIUM [Concomitant]
  5. IBUPROFEN [Concomitant]
  6. FUROSEMIDE [Concomitant]
  7. DIPHENHYDRAMINE HCL [Concomitant]
  8. ACETAMINOPHEN [Concomitant]
  9. IPRATROPIUM BROMIDE [Concomitant]
  10. LORAZEPAM [Concomitant]
  11. FLUNISOLIDE [Concomitant]

REACTIONS (11)
  - ABASIA [None]
  - BLOOD CREATININE INCREASED [None]
  - BLOOD POTASSIUM INCREASED [None]
  - BLOOD PRESSURE DECREASED [None]
  - DIABETES INSIPIDUS [None]
  - DRUG INTERACTION [None]
  - LOSS OF CONSCIOUSNESS [None]
  - NEUROLEPTIC MALIGNANT SYNDROME [None]
  - SEPSIS [None]
  - SOMNOLENCE [None]
  - TACHYPNOEA [None]
